FAERS Safety Report 17507061 (Version 2)
Quarter: 2021Q1

REPORT INFORMATION
  Report Type: Spontaneous
  Country: US (occurrence: US)
  Receive Date: 20200305
  Receipt Date: 20210226
  Transmission Date: 20210419
  Serious: No
  Sender: FDA-Public Use
  Company Number: US-ROCHE-2505066

PATIENT
  Sex: Female
  Weight: 68.55 kg

DRUGS (5)
  1. XOLAIR [Suspect]
     Active Substance: OMALIZUMAB
     Dosage: ONGOING:NO
     Route: 058
     Dates: start: 201907
  2. XOLAIR [Suspect]
     Active Substance: OMALIZUMAB
     Dosage: ONGOING:NO
     Route: 058
     Dates: start: 2014
  3. XOLAIR [Suspect]
     Active Substance: OMALIZUMAB
     Route: 058
     Dates: start: 20200117
  4. XOLAIR [Suspect]
     Active Substance: OMALIZUMAB
     Indication: ASTHMA
     Route: 058
  5. XOLAIR [Suspect]
     Active Substance: OMALIZUMAB
     Indication: URTICARIA
     Dosage: ONGOING:NO
     Route: 058
     Dates: start: 201801

REACTIONS (3)
  - No adverse event [Unknown]
  - Asthma [Not Recovered/Not Resolved]
  - Urticaria [Not Recovered/Not Resolved]
